FAERS Safety Report 10150237 (Version 1)
Quarter: 2014Q2

REPORT INFORMATION
  Report Type: Spontaneous
  Country: US (occurrence: None)
  Receive Date: 20140501
  Receipt Date: 20140501
  Transmission Date: 20141212
  Serious: Yes (Hospitalization)
  Sender: FDA-Public Use
  Company Number: None

PATIENT
  Age: 44 Year
  Sex: Female

DRUGS (9)
  1. HYDROMORPHONE [Suspect]
     Indication: PAIN
     Route: 042
     Dates: start: 20131017, end: 20131017
  2. ASPIRIN [Concomitant]
  3. DIPHENHYDRAMINE [Concomitant]
  4. DOCUSATE [Concomitant]
  5. MULTIVITAMIN [Concomitant]
  6. MYCOPHENOLATE [Concomitant]
  7. PREDNISONE [Concomitant]
  8. TACROLIMUS [Concomitant]
  9. ANTITHYMOCYTE GLOBULIN [Concomitant]

REACTIONS (5)
  - Bradycardia [None]
  - Apnoea [None]
  - Hypoxia [None]
  - Blood pressure increased [None]
  - Respiratory rate decreased [None]
